FAERS Safety Report 12506467 (Version 1)
Quarter: 2016Q2

REPORT INFORMATION
  Report Type: Spontaneous
  Country: FR (occurrence: FR)
  Receive Date: 20160628
  Receipt Date: 20160628
  Transmission Date: 20160815
  Serious: Yes (Hospitalization)
  Sender: FDA-Public Use
  Company Number: FR-009507513-1606FRA010978

PATIENT
  Age: 41 Year
  Sex: Male

DRUGS (10)
  1. LEDERFOLINE [Concomitant]
     Active Substance: LEUCOVORIN CALCIUM
  2. BECILAN [Concomitant]
     Active Substance: PYRIDOXINE
  3. METHADONE [Concomitant]
     Active Substance: METHADONE HYDROCHLORIDE
     Indication: DRUG DEPENDENCE
  4. CALCIPARINE [Concomitant]
     Active Substance: HEPARIN CALCIUM
  5. DIFFU-K [Concomitant]
     Active Substance: POTASSIUM CHLORIDE
     Route: 048
  6. LASILIX [Concomitant]
     Active Substance: FUROSEMIDE
  7. TRIATEC [Concomitant]
     Active Substance: RAMIPRIL
  8. BEVITINE [Concomitant]
     Active Substance: THIAMINE
  9. CUBICIN [Suspect]
     Active Substance: DAPTOMYCIN
     Dosage: 600 MG, QD
     Route: 042
     Dates: start: 20160402, end: 20160505
  10. ORBENINE [Suspect]
     Active Substance: CLOXACILLIN SODIUM
     Dosage: 3 G, 4 TIMES A DAY
     Route: 042
     Dates: start: 20160330, end: 20160502

REACTIONS (2)
  - Leukopenia [Recovered/Resolved]
  - Agranulocytosis [Recovered/Resolved]

NARRATIVE: CASE EVENT DATE: 20160426
